FAERS Safety Report 25931629 (Version 2)
Quarter: 2025Q4

REPORT INFORMATION
  Report Type: Report from Study
  Country: US (occurrence: US)
  Receive Date: 20251016
  Receipt Date: 20251127
  Transmission Date: 20260118
  Serious: Yes (Other)
  Sender: VERONA PHARMA
  Company Number: US-VERONA PHARMA-VER-009191

PATIENT
  Sex: Female

DRUGS (13)
  1. OHTUVAYRE [Suspect]
     Active Substance: ENSIFENTRINE
     Indication: Chronic obstructive pulmonary disease
     Dosage: 3 MILLIGRAM, BID (ONCE IN THE MORNING AND ONCE IN THE EVENING)
  2. OHTUVAYRE [Suspect]
     Active Substance: ENSIFENTRINE
     Dosage: 3 MILLIGRAM, BID (ONCE IN THE MORNING AND ONCE IN THE EVENING)
     Dates: end: 202511
  3. VITAMINS [Concomitant]
     Active Substance: VITAMINS
     Indication: Product used for unknown indication
     Dosage: CHE
  4. VITAMIN C [Concomitant]
     Active Substance: ASCORBIC ACID
     Indication: Product used for unknown indication
     Dosage: 500 MILLIGRAM, CHE
  5. VITAMIN D3 [Concomitant]
     Active Substance: CHOLECALCIFEROL
     Indication: Product used for unknown indication
     Dosage: 100000 UNIT
  6. ALBUTEROL SULFATE [Concomitant]
     Active Substance: ALBUTEROL SULFATE
     Indication: Product used for unknown indication
     Dosage: AER 108 (90
  7. ALBUTEROL SULFATE [Concomitant]
     Active Substance: ALBUTEROL SULFATE
     Dosage: NEB 0.63MG/3
  8. BREO ELLIPTA [Concomitant]
     Active Substance: FLUTICASONE FUROATE\VILANTEROL TRIFENATATE
     Indication: Product used for unknown indication
     Dosage: AEP, 200-25MC
  9. DUPIXENT [Concomitant]
     Active Substance: DUPILUMAB
     Indication: Product used for unknown indication
     Dosage: SOA 300MG/2ML
  10. ELIQUIS [Concomitant]
     Active Substance: APIXABAN
     Indication: Product used for unknown indication
     Dosage: 5 MILLIGRAM
  11. INCRUSE ELLIPTA [Concomitant]
     Active Substance: UMECLIDINIUM BROMIDE
     Indication: Product used for unknown indication
     Dosage: AEP 62.5MCG/
  12. SINGULAIR [Concomitant]
     Active Substance: MONTELUKAST SODIUM
     Indication: Product used for unknown indication
     Dosage: 5 MILLIGRAM, CHE
  13. XANAX [Concomitant]
     Active Substance: ALPRAZOLAM
     Indication: Product used for unknown indication
     Dosage: 0.25 MILLIGRAM

REACTIONS (10)
  - Atrial fibrillation [Not Recovered/Not Resolved]
  - Dyspnoea [Recovering/Resolving]
  - Gait inability [Recovering/Resolving]
  - Nausea [Recovering/Resolving]
  - Personality change [Recovering/Resolving]
  - Dizziness [Not Recovered/Not Resolved]
  - Bone pain [Not Recovered/Not Resolved]
  - COVID-19 [Unknown]
  - Diarrhoea [Not Recovered/Not Resolved]
  - Anxiety [Recovering/Resolving]
